FAERS Safety Report 21489772 (Version 3)
Quarter: 2022Q4

REPORT INFORMATION
  Report Type: Spontaneous
  Country: US (occurrence: US)
  Receive Date: 20221021
  Receipt Date: 20221125
  Transmission Date: 20230113
  Serious: No
  Sender: FDA-Public Use
  Company Number: US-NOVARTISTESTPH-NVSC2022US237076

PATIENT

DRUGS (1)
  1. KYMRIAH [Suspect]
     Active Substance: TISAGENLECLEUCEL
     Indication: Product used for unknown indication
     Dosage: 34 ML, ONCE/SINGLE (4.8 X 10^6 CAR-POSITIVE VIABLE T CELLS)
     Route: 041
     Dates: start: 20220413, end: 20220413

REACTIONS (1)
  - Disease recurrence [Unknown]
